FAERS Safety Report 6864936-4 (Version None)
Quarter: 2010Q3

REPORT INFORMATION
  Report Type: 
  Country: None (occurrence: None)
  Receive Date: 20100720
  Receipt Date: 20100712
  Transmission Date: 20110219
  Serious: Yes (Hospitalization)
  Sender: FDA-Public Use
  Company Number: 2010SP038391

PATIENT
  Age: 75 Year
  Sex: Female

DRUGS (3)
  1. MIRTAZAPINE [Suspect]
     Indication: PRODUCT USED FOR UNKNOWN INDICATION
  2. CYMBALTA [Suspect]
     Indication: DEPRESSION
     Dosage: 30 MG;QD;PO
     Route: 048
  3. TRAMADOL HCL [Concomitant]

REACTIONS (2)
  - HYPONATRAEMIA [None]
  - LOSS OF CONSCIOUSNESS [None]
